FAERS Safety Report 6876837-6 (Version None)
Quarter: 2010Q3

REPORT INFORMATION
  Report Type: 
  Country: None (occurrence: None)
  Receive Date: 20100727
  Receipt Date: 20100715
  Transmission Date: 20110219
  Serious: Yes (Hospitalization)
  Sender: FDA-Public Use
  Company Number: US-ROCHE-716012

PATIENT
  Sex: Female
  Weight: 68 kg

DRUGS (7)
  1. TOCILIZUMAB [Suspect]
     Indication: RHEUMATOID ARTHRITIS
     Dosage: LAST DOSE PRIOR TO SAE: 17 JUNE 2010.
     Route: 042
     Dates: start: 20090618
  2. PLACEBO [Suspect]
     Indication: RHEUMATOID ARTHRITIS
     Dosage: LAST DOSE PRIOR TO SAE: 17 JUNE 2010.
     Route: 048
     Dates: start: 20090616
  3. FOLIC ACID [Concomitant]
     Dates: start: 19940101
  4. VICODIN [Concomitant]
     Dates: start: 20090101
  5. LORAZEPAM [Concomitant]
     Dates: start: 19950601
  6. PRILOSEC [Concomitant]
     Dates: start: 20081101
  7. AMLODIPINE [Concomitant]
     Dates: start: 20071101

REACTIONS (1)
  - COLPOCELE [None]
